FAERS Safety Report 23728657 (Version 1)
Quarter: 2024Q2

REPORT INFORMATION
  Report Type: Spontaneous
  Country: CN (occurrence: CN)
  Receive Date: 20240410
  Receipt Date: 20240410
  Transmission Date: 20240716
  Serious: Yes (Hospitalization)
  Sender: FDA-Public Use
  Company Number: CN-FreseniusKabi-FK202405734

PATIENT
  Age: 36 Year
  Sex: Female
  Weight: 64 kg

DRUGS (3)
  1. PROPOFOL [Suspect]
     Active Substance: PROPOFOL
     Indication: General anaesthesia
     Dosage: EMULSION FOR INJECTION/INFUSION
     Route: 041
     Dates: start: 20240401, end: 20240401
  2. BUTORPHANOL TARTRATE [Suspect]
     Active Substance: BUTORPHANOL TARTRATE
     Indication: General anaesthesia
     Dosage: FORM OF ADMIN: INJECTION
     Route: 041
     Dates: start: 20240401, end: 20240401
  3. FLURBIPROFEN AXETIL [Concomitant]
     Active Substance: FLURBIPROFEN AXETIL
     Indication: General anaesthesia
     Dosage: FORM OF ADMIN: INJECTION
     Route: 041
     Dates: start: 20240401, end: 20240401

REACTIONS (1)
  - Dermatitis allergic [Recovering/Resolving]

NARRATIVE: CASE EVENT DATE: 20240401
